FAERS Safety Report 8355979 (Version 5)
Quarter: 2013Q4

REPORT INFORMATION
  Report Type: Spontaneous
  Country: US (occurrence: US)
  Receive Date: 20120126
  Receipt Date: 20131111
  Transmission Date: 20140711
  Serious: Yes (Hospitalization)
  Sender: FDA-Public Use
  Company Number: US-ACTELION-A-US2012-59998

PATIENT
  Age: 3 Year
  Sex: Female

DRUGS (10)
  1. TRACLEER [Suspect]
     Indication: PULMONARY ARTERIAL HYPERTENSION
     Dosage: 12.5 MG, BID
     Route: 048
  2. REVATIO [Concomitant]
     Dosage: 25 MG, TID
     Route: 048
  3. HEPARIN [Concomitant]
  4. REMODULIN [Concomitant]
     Dosage: 2 NG/KG, PER MIN
  5. REMODULIN [Concomitant]
     Dosage: 10 NG/KG, PER MIN
  6. ASPIRIN [Concomitant]
     Dosage: 81 MG, QD
     Route: 048
  7. AMLODIPINE [Concomitant]
     Dosage: 1 MG, QD
     Route: 048
  8. LASIX [Concomitant]
     Dosage: 12 MG, BID
     Route: 048
  9. PANTOPRAZOLE [Concomitant]
     Dosage: 12.5 MG, QD
     Route: 048
  10. PREDNISONE [Concomitant]
     Dosage: 6.6 MG, BID
     Route: 048

REACTIONS (8)
  - Device related infection [Unknown]
  - Pyrexia [Unknown]
  - Heart rate abnormal [Unknown]
  - Central venous catheterisation [Unknown]
  - Pulmonary arterial hypertension [Unknown]
  - Condition aggravated [Unknown]
  - Exercise tolerance decreased [Unknown]
  - Ascites [Unknown]
